FAERS Safety Report 4767234-8 (Version None)
Quarter: 2005Q3

REPORT INFORMATION
  Report Type: 
  Country: None (occurrence: None)
  Receive Date: 20050909
  Receipt Date: 20050909
  Transmission Date: 20060218
  Serious: Yes (Hospitalization)
  Sender: FDA-Public Use
  Company Number: None

PATIENT
  Age: 75 Year
  Sex: Female
  Weight: 67.586 kg

DRUGS (18)
  1. CARBOPLATIN [Suspect]
     Indication: OVARIAN CANCER
     Dosage: AUC 5 IV D1 Q 3 WKS
     Route: 042
     Dates: start: 20050427
  2. CARBOPLATIN [Suspect]
     Indication: OVARIAN CANCER
     Dosage: AUC 5 IV D1 Q 3 WKS
     Route: 042
     Dates: start: 20050503
  3. CARBOPLATIN [Suspect]
     Indication: OVARIAN CANCER
     Dosage: AUC 5 IV D1 Q 3 WKS
     Route: 042
     Dates: start: 20050517
  4. CARBOPLATIN [Suspect]
     Indication: OVARIAN CANCER
     Dosage: AUC 5 IV D1 Q 3 WKS
     Route: 042
     Dates: start: 20050524
  5. CARBOPLATIN [Suspect]
     Indication: OVARIAN CANCER
     Dosage: AUC 5 IV D1 Q 3 WKS
     Route: 042
     Dates: start: 20050607
  6. CARBOPLATIN [Suspect]
     Indication: OVARIAN CANCER
     Dosage: AUC 5 IV D1 Q 3 WKS
     Route: 042
     Dates: start: 20050614
  7. CARBOPLATIN [Suspect]
     Indication: OVARIAN CANCER
     Dosage: AUC 5 IV D1 Q 3 WKS
     Route: 042
     Dates: start: 20050627
  8. CARBOPLATIN [Suspect]
     Indication: OVARIAN CANCER
     Dosage: AUC 5 IV D1 Q 3 WKS
     Route: 042
     Dates: start: 20050705
  9. CARBOPLATIN [Suspect]
     Indication: OVARIAN CANCER
     Dosage: AUC 5 IV D1 Q 3 WKS
     Route: 042
     Dates: start: 20050719
  10. GEMCITABINE [Suspect]
     Indication: OVARIAN CANCER
     Dosage: 1000 MG/M2 IV D1,8 Q3 WKS
     Route: 042
     Dates: start: 20050427
  11. GEMCITABINE [Suspect]
     Indication: OVARIAN CANCER
     Dosage: 1000 MG/M2 IV D1,8 Q3 WKS
     Route: 042
     Dates: start: 20050503
  12. GEMCITABINE [Suspect]
     Indication: OVARIAN CANCER
     Dosage: 1000 MG/M2 IV D1,8 Q3 WKS
     Route: 042
     Dates: start: 20050517
  13. GEMCITABINE [Suspect]
     Indication: OVARIAN CANCER
     Dosage: 1000 MG/M2 IV D1,8 Q3 WKS
     Route: 042
     Dates: start: 20050524
  14. GEMCITABINE [Suspect]
     Indication: OVARIAN CANCER
     Dosage: 1000 MG/M2 IV D1,8 Q3 WKS
     Route: 042
     Dates: start: 20050607
  15. GEMCITABINE [Suspect]
     Indication: OVARIAN CANCER
     Dosage: 1000 MG/M2 IV D1,8 Q3 WKS
     Route: 042
     Dates: start: 20050614
  16. GEMCITABINE [Suspect]
     Indication: OVARIAN CANCER
     Dosage: 1000 MG/M2 IV D1,8 Q3 WKS
     Route: 042
     Dates: start: 20050627
  17. GEMCITABINE [Suspect]
     Indication: OVARIAN CANCER
     Dosage: 1000 MG/M2 IV D1,8 Q3 WKS
     Route: 042
     Dates: start: 20050705
  18. GEMCITABINE [Suspect]
     Indication: OVARIAN CANCER
     Dosage: 1000 MG/M2 IV D1,8 Q3 WKS
     Route: 042
     Dates: start: 20050719

REACTIONS (5)
  - ACTIVITIES OF DAILY LIVING IMPAIRED [None]
  - FALL [None]
  - MOBILITY DECREASED [None]
  - PNEUMONIA [None]
  - STAPHYLOCOCCAL INFECTION [None]
